FAERS Safety Report 24572373 (Version 1)
Quarter: 2024Q4

REPORT INFORMATION
  Report Type: Spontaneous
  Country: DE (occurrence: DE)
  Receive Date: 20241101
  Receipt Date: 20241101
  Transmission Date: 20250115
  Serious: Yes (Death, Other)
  Sender: AMGEN
  Company Number: DE-AMGEN-DEUSP2024211946

PATIENT

DRUGS (2)
  1. BEVACIZUMAB [Suspect]
     Active Substance: BEVACIZUMAB
     Indication: Product used for unknown indication
     Dosage: UNK
     Route: 065
  2. ATEZOLIZUMAB [Concomitant]
     Active Substance: ATEZOLIZUMAB
     Dosage: UNK
     Route: 065

REACTIONS (9)
  - Malignant neoplasm progression [Fatal]
  - Immune-mediated enterocolitis [Unknown]
  - Capillary leak syndrome [Unknown]
  - Immune-mediated hepatitis [Unknown]
  - Immune-mediated lung disease [Unknown]
  - Immune-mediated pancreatitis [Unknown]
  - Drug eruption [Unknown]
  - Serositis [Unknown]
  - Fatigue [Unknown]
